FAERS Safety Report 6510819-9 (Version None)
Quarter: 2009Q4

REPORT INFORMATION
  Report Type: 
  Country: None (occurrence: None)
  Receive Date: 20091222
  Receipt Date: 20090113
  Transmission Date: 20100525
  Serious: No
  Sender: FDA-Public Use
  Company Number: US-ASTRAZENECA-2009UW01064

PATIENT
  Age: 69 Year
  Sex: Male
  Weight: 74.8 kg

DRUGS (2)
  1. CRESTOR [Suspect]
     Indication: BLOOD CHOLESTEROL INCREASED
     Route: 048
     Dates: start: 20080101, end: 20081101
  2. CRESTOR [Suspect]
     Route: 048

REACTIONS (1)
  - SEXUAL DYSFUNCTION [None]
